FAERS Safety Report 16630566 (Version 1)
Quarter: 2019Q3

REPORT INFORMATION
  Report Type: Spontaneous
  Country: US (occurrence: US)
  Receive Date: 20190725
  Receipt Date: 20190725
  Transmission Date: 20191004
  Serious: No
  Sender: FDA-Public Use
  Company Number: US-JNJFOC-20190726854

PATIENT
  Age: 57 Year
  Sex: Female
  Weight: 53.57 kg

DRUGS (7)
  1. LEXAPRO [Concomitant]
     Active Substance: ESCITALOPRAM OXALATE
     Indication: PRODUCT USED FOR UNKNOWN INDICATION
     Dosage: EVERY 5 WEEKS AS A CLINICAL TRIAL
     Route: 065
  2. CELEBREX [Concomitant]
     Active Substance: CELECOXIB
     Indication: PRODUCT USED FOR UNKNOWN INDICATION
  3. REMICADE [Concomitant]
     Active Substance: INFLIXIMAB
     Indication: POST VIRAL FATIGUE SYNDROME
     Dosage: EVERY 5 WEEKS AS A CLINICAL TRIAL
     Route: 065
  4. SAVELLA [Concomitant]
     Active Substance: MILNACIPRAN HYDROCHLORIDE
     Indication: PRODUCT USED FOR UNKNOWN INDICATION
     Dosage: EVERY 5 WEEKS AS A CLINICAL TRIAL
     Route: 065
  5. VITAMIN D                          /00107901/ [Concomitant]
     Active Substance: ERGOCALCIFEROL
     Indication: PRODUCT USED FOR UNKNOWN INDICATION
     Dosage: EVERY 5 WEEKS AS A CLINICAL TRIAL
     Route: 065
  6. WOMENS ROGAINE UNSCENTED [Suspect]
     Active Substance: MINOXIDIL
     Indication: ALOPECIA
     Dosage: SPRAY DIRECTLY ON PART-LINE OF HAIR (UNKNOWN AMOUNT) 1X PER DAY
     Route: 061
  7. OXYCONTIN [Concomitant]
     Active Substance: OXYCODONE HYDROCHLORIDE
     Indication: PRODUCT USED FOR UNKNOWN INDICATION
     Dosage: EVERY 5 WEEKS AS A CLINICAL TRIAL
     Route: 065

REACTIONS (6)
  - Hair texture abnormal [Recovered/Resolved]
  - Product residue present [Recovered/Resolved]
  - Wrong technique in product usage process [Recovering/Resolving]
  - Stress [Recovering/Resolving]
  - Expired product administered [Recovering/Resolving]
  - Incorrect dose administered [Recovering/Resolving]
